FAERS Safety Report 25341700 (Version 1)
Quarter: 2025Q2

REPORT INFORMATION
  Report Type: Spontaneous
  Country: GR (occurrence: GR)
  Receive Date: 20250521
  Receipt Date: 20250521
  Transmission Date: 20250716
  Serious: Yes (Hospitalization)
  Sender: PFIZER
  Company Number: GR-PFIZER INC-PV202500057216

PATIENT
  Age: 10 Year
  Sex: Female
  Weight: 30 kg

DRUGS (6)
  1. GENOTROPIN [Suspect]
     Active Substance: SOMATROPIN
     Indication: Hypopituitarism
     Route: 058
     Dates: start: 202304
  2. RAMIPRIL [Concomitant]
     Active Substance: RAMIPRIL
  3. ALFACALCIDOL [Concomitant]
     Active Substance: ALFACALCIDOL
  4. ALLOPURINOL [Concomitant]
     Active Substance: ALLOPURINOL
  5. CALCIUM CARBONATE [Concomitant]
     Active Substance: CALCIUM CARBONATE
  6. SODIUM BICARBONATE [Concomitant]
     Active Substance: SODIUM BICARBONATE

REACTIONS (1)
  - Hypotension [Recovered/Resolved]

NARRATIVE: CASE EVENT DATE: 20250514
